FAERS Safety Report 24301971 (Version 1)
Quarter: 2024Q3

REPORT INFORMATION
  Report Type: Spontaneous
  Country: US (occurrence: US)
  Receive Date: 20240910
  Receipt Date: 20240910
  Transmission Date: 20241017
  Serious: No
  Sender: MANKIND PHARMA
  Company Number: US-MankindUS-000211

PATIENT
  Sex: Female
  Weight: 53.07 kg

DRUGS (5)
  1. OFLOXACIN [Suspect]
     Active Substance: OFLOXACIN
     Indication: Ear infection
     Dosage: 5 DROPS IN THE RIGHT EAR BID X 10 DAYS
  2. OFLOXACIN [Suspect]
     Active Substance: OFLOXACIN
     Indication: Ear infection
     Dosage: 5 DROPS IN THE RIGHT EAR BID X 10 DAYS
  3. LIPITOR [Concomitant]
     Active Substance: ATORVASTATIN CALCIUM
     Indication: Blood cholesterol
     Dosage: STRENGTH: 10 MG
  4. FLUTICASONE PROPIONATE [Concomitant]
     Active Substance: FLUTICASONE PROPIONATE
  5. AZELASTINE/AZELASTINE HYDROCHLORIDE [Concomitant]

REACTIONS (4)
  - Product prescribing issue [Unknown]
  - Paraesthesia oral [Unknown]
  - Glossodynia [Unknown]
  - Lip swelling [Unknown]
